FAERS Safety Report 23696812 (Version 2)
Quarter: 2024Q2

REPORT INFORMATION
  Report Type: Spontaneous
  Country: CA (occurrence: CA)
  Receive Date: 20240402
  Receipt Date: 20240416
  Transmission Date: 20240716
  Serious: Yes (Other)
  Sender: FDA-Public Use
  Company Number: CA-PFIZER INC-202400075834

PATIENT
  Age: 76 Year
  Sex: Male

DRUGS (4)
  1. RUXIENCE [Suspect]
     Active Substance: RITUXIMAB-PVVR
     Indication: Rheumatoid arthritis
     Dosage: 1000 MG, ONE-TIME DOSE
     Route: 042
     Dates: start: 20220426, end: 20220426
  2. RUXIENCE [Suspect]
     Active Substance: RITUXIMAB-PVVR
     Dosage: 1000 MG, ONE-TIME DOSE
     Route: 042
     Dates: start: 20221026, end: 20221026
  3. RUXIENCE [Suspect]
     Active Substance: RITUXIMAB-PVVR
     Dosage: 1000 MG, ONE TIME DOSE
     Route: 042
     Dates: start: 20230727, end: 20230727
  4. RUXIENCE [Suspect]
     Active Substance: RITUXIMAB-PVVR
     Dosage: 1000 MG, DAY 1  (8 MONTHS AND 1 DAY AFTER LAST TREATMENT)
     Route: 042
     Dates: start: 20240328

REACTIONS (3)
  - Pruritus [Recovered/Resolved]
  - Pharyngeal paraesthesia [Recovered/Resolved]
  - Inappropriate schedule of product administration [Unknown]

NARRATIVE: CASE EVENT DATE: 20240328
